FAERS Safety Report 8480242-9 (Version None)
Quarter: 2012Q2

REPORT INFORMATION
  Report Type: 
  Country: None (occurrence: None)
  Receive Date: 20120629
  Receipt Date: 20120619
  Transmission Date: 20120825
  Serious: Yes (Disabling)
  Sender: FDA-Public Use
  Company Number: JP-ALLERGAN-1208753US

PATIENT
  Age: 49 Year
  Sex: Female

DRUGS (3)
  1. AIPHAGAN [Suspect]
     Indication: GLAUCOMA
     Dosage: 1 GTT, QD, EACH (BOTH EYES)
     Route: 047
     Dates: start: 20120525, end: 20120525
  2. LUMIGAN [Concomitant]
     Indication: PRODUCT USED FOR UNKNOWN INDICATION
     Dosage: UNK
     Dates: end: 20120525
  3. AZOPT [Concomitant]
     Indication: PRODUCT USED FOR UNKNOWN INDICATION
     Dosage: UNK
     Dates: end: 20120525

REACTIONS (4)
  - STEVENS-JOHNSON SYNDROME [None]
  - EYELID OEDEMA [None]
  - CIRCUMORAL OEDEMA [None]
  - LACRIMATION INCREASED [None]
